FAERS Safety Report 10200281 (Version 2)
Quarter: 2014Q2

REPORT INFORMATION
  Report Type: Report from Study
  Country: US (occurrence: US)
  Receive Date: 20140527
  Receipt Date: 20140527
  Transmission Date: 20141212
  Serious: Yes (Hospitalization, Other)
  Sender: FDA-Public Use
  Company Number: US-ASTRAZENECA-2013SE89562

PATIENT
  Sex: Female
  Weight: 40.8 kg

DRUGS (1)
  1. NEXIUM [Suspect]
     Indication: GASTROOESOPHAGEAL REFLUX DISEASE
     Route: 048

REACTIONS (15)
  - Osteoporotic fracture [Unknown]
  - Renal failure chronic [Unknown]
  - Staphylococcal infection [Unknown]
  - Ankle fracture [Unknown]
  - Fracture nonunion [Unknown]
  - Lower limb fracture [Unknown]
  - Gastrointestinal haemorrhage [Unknown]
  - Osteoporosis [Unknown]
  - Blood count abnormal [Unknown]
  - Blood calcium decreased [Unknown]
  - Weight decreased [Unknown]
  - Blood magnesium decreased [Unknown]
  - Malaise [Unknown]
  - Intentional product misuse [Unknown]
  - Drug dose omission [Not Recovered/Not Resolved]
